FAERS Safety Report 16304837 (Version 1)
Quarter: 2019Q2

REPORT INFORMATION
  Report Type: Spontaneous
  Country: US (occurrence: US)
  Receive Date: 20190510
  Receipt Date: 20190510
  Transmission Date: 20190711
  Serious: Yes (Life-Threatening)
  Sender: FDA-Public Use
  Company Number: None

PATIENT
  Age: 68 Year
  Sex: Male
  Weight: 112.5 kg

DRUGS (22)
  1. TETRACYCLINE [Concomitant]
     Active Substance: TETRACYCLINE
     Dates: start: 20190411, end: 20190430
  2. TAMSULOSIN [Concomitant]
     Active Substance: TAMSULOSIN
     Dates: start: 20140115
  3. CLONIDINE. [Concomitant]
     Active Substance: CLONIDINE
     Dates: start: 20150423
  4. EMPAGLIFLOZIN [Concomitant]
     Active Substance: EMPAGLIFLOZIN
     Dates: start: 20190315
  5. DIAZEPAM. [Concomitant]
     Active Substance: DIAZEPAM
     Dates: start: 20140226
  6. FUROSEMIDE. [Concomitant]
     Active Substance: FUROSEMIDE
     Dates: start: 20190425, end: 20190430
  7. SCOPOLAMINE PATCH [Concomitant]
     Active Substance: SCOPOLAMINE
     Dates: start: 20140509
  8. SERTRALINE [Concomitant]
     Active Substance: SERTRALINE HYDROCHLORIDE
     Dates: start: 20140115
  9. VENLAFAXINE [Concomitant]
     Active Substance: VENLAFAXINE HYDROCHLORIDE
     Dates: start: 20140115
  10. GABAPENTIN. [Concomitant]
     Active Substance: GABAPENTIN
     Dates: start: 20140804
  11. HYDRALAZINE [Concomitant]
     Active Substance: HYDRALAZINE HYDROCHLORIDE
     Dates: start: 20150608
  12. ONDANSETRON [Concomitant]
     Active Substance: ONDANSETRON
     Dates: start: 20190424
  13. LISINOPRIL. [Concomitant]
     Active Substance: LISINOPRIL
     Dates: start: 20150115
  14. PHENYTOIN. [Concomitant]
     Active Substance: PHENYTOIN
     Dates: start: 20141103
  15. CLOPIDOGREL [Concomitant]
     Active Substance: CLOPIDOGREL BISULFATE
     Dates: start: 20150521
  16. ISOSORBIDE. [Concomitant]
     Active Substance: ISOSORBIDE
     Dates: start: 20140115
  17. METOPROLOL. [Concomitant]
     Active Substance: METOPROLOL
     Dates: start: 20171108
  18. OXYCODONE [Concomitant]
     Active Substance: OXYCODONE
     Dates: start: 20140129
  19. PHENYTOIN SODIUM. [Suspect]
     Active Substance: PHENYTOIN SODIUM
     Indication: SEIZURE
     Route: 048
     Dates: start: 20141103
  20. LANSOPRAZOLE. [Concomitant]
     Active Substance: LANSOPRAZOLE
     Dates: start: 20180604
  21. TETRACYCLINE HCL [Suspect]
     Active Substance: TETRACYCLINE HYDROCHLORIDE
     Indication: DIABETIC FOOT
     Route: 048
     Dates: start: 20190411, end: 20190430
  22. INSULIN (HUMAN) 70/30 [Concomitant]
     Dates: start: 20150422

REACTIONS (5)
  - Nausea [None]
  - Fatigue [None]
  - Hallucination [None]
  - Vomiting [None]
  - Asthenia [None]

NARRATIVE: CASE EVENT DATE: 20190430
